FAERS Safety Report 16440917 (Version 1)
Quarter: 2019Q2

REPORT INFORMATION
  Report Type: Spontaneous
  Country: US (occurrence: US)
  Receive Date: 20190617
  Receipt Date: 20190617
  Transmission Date: 20190711
  Serious: Yes (Hospitalization, Other)
  Sender: FDA-Public Use
  Company Number: US-FRESENIUS KABI-FK201906465

PATIENT
  Age: 66 Year
  Sex: Male

DRUGS (6)
  1. TRETINOIN. [Suspect]
     Active Substance: TRETINOIN
     Indication: ACUTE PROMYELOCYTIC LEUKAEMIA
     Route: 048
     Dates: start: 20181120
  2. TRETINOIN. [Suspect]
     Active Substance: TRETINOIN
     Dosage: REGIMEN 2
     Route: 065
     Dates: start: 20190512
  3. ARSENIC TRIOXIDE INJECTION [Suspect]
     Active Substance: ARSENIC TRIOXIDE
     Dosage: REGIMEN 2
     Route: 065
     Dates: start: 20190516
  4. GEMTUZUMAB OZOGAMICIN [Suspect]
     Active Substance: GEMTUZUMAB OZOGAMICIN
     Dosage: REGIMEN 2
     Route: 042
     Dates: start: 20190510
  5. ARSENIC TRIOXIDE INJECTION [Suspect]
     Active Substance: ARSENIC TRIOXIDE
     Indication: ACUTE PROMYELOCYTIC LEUKAEMIA
     Route: 042
     Dates: start: 20181120
  6. GEMTUZUMAB OZOGAMICIN [Suspect]
     Active Substance: GEMTUZUMAB OZOGAMICIN
     Indication: ACUTE PROMYELOCYTIC LEUKAEMIA
     Route: 042
     Dates: start: 20181120

REACTIONS (2)
  - Sepsis [Unknown]
  - Hepatobiliary disease [Recovered/Resolved]

NARRATIVE: CASE EVENT DATE: 20190517
